FAERS Safety Report 15204866 (Version 1)
Quarter: 2018Q3

REPORT INFORMATION
  Report Type: Spontaneous
  Country: US (occurrence: US)
  Receive Date: 20180726
  Receipt Date: 20180726
  Transmission Date: 20181010
  Serious: Yes (Other)
  Sender: FDA-Public Use
  Company Number: US-SHIRE-US201828426

PATIENT

DRUGS (1)
  1. FIRAZYR [Suspect]
     Active Substance: ICATIBANT ACETATE
     Indication: HEREDITARY ANGIOEDEMA
     Dosage: 30 MG, 3 ML AS REQ^D
     Route: 058

REACTIONS (7)
  - Feeling hot [Recovering/Resolving]
  - Loss of consciousness [Recovering/Resolving]
  - Burning sensation [Recovering/Resolving]
  - Flushing [Recovering/Resolving]
  - Hereditary angioedema [Recovering/Resolving]
  - Dizziness [Recovering/Resolving]
  - Somnolence [Recovering/Resolving]

NARRATIVE: CASE EVENT DATE: 20180717
